FAERS Safety Report 15960115 (Version 1)
Quarter: 2019Q1

REPORT INFORMATION
  Report Type: Spontaneous
  Country: US (occurrence: US)
  Receive Date: 20190214
  Receipt Date: 20190214
  Transmission Date: 20190417
  Serious: No
  Sender: FDA-Public Use
  Company Number: US-ROCHE-2154224

PATIENT
  Sex: Male

DRUGS (2)
  1. ERIVEDGE [Suspect]
     Active Substance: VISMODEGIB
     Indication: CHRONIC OBSTRUCTIVE PULMONARY DISEASE
  2. ERIVEDGE [Suspect]
     Active Substance: VISMODEGIB
     Indication: COLON CANCER
     Route: 048
     Dates: start: 20180612

REACTIONS (4)
  - Gastric disorder [Unknown]
  - Intentional product use issue [Unknown]
  - Off label use [Unknown]
  - Ageusia [Unknown]
